FAERS Safety Report 5807718-4 (Version None)
Quarter: 2008Q3

REPORT INFORMATION
  Report Type: 
  Country: None (occurrence: None)
  Receive Date: 20080711
  Receipt Date: 20080701
  Transmission Date: 20090109
  Serious: Yes (Life-Threatening, Other)
  Sender: FDA-Public Use
  Company Number: BR-ABBOTT-08P-020-0458037-00

PATIENT
  Sex: Male
  Weight: 75 kg

DRUGS (5)
  1. HUMIRA [Suspect]
     Indication: RHEUMATOID ARTHRITIS
     Dosage: 1 APPLICATION EVERY 14 DAYS
     Route: 058
     Dates: start: 20070501, end: 20071201
  2. PREDNISONE TAB [Concomitant]
     Indication: RHEUMATOID ARTHRITIS
     Route: 048
  3. METHOTREXATE [Concomitant]
     Indication: RHEUMATOID ARTHRITIS
     Route: 048
     Dates: start: 20070101
  4. METHOTREXATE [Concomitant]
     Route: 048
     Dates: start: 20080401
  5. SULFASALAZINE [Concomitant]
     Indication: RHEUMATOID ARTHRITIS
     Route: 048

REACTIONS (8)
  - ABASIA [None]
  - DIPLEGIA [None]
  - HYPOPHAGIA [None]
  - INFLAMMATION [None]
  - OSTEITIS [None]
  - PAIN [None]
  - RESPIRATORY ARREST [None]
  - RESPIRATORY FAILURE [None]
